FAERS Safety Report 6301650-8 (Version None)
Quarter: 2009Q3

REPORT INFORMATION
  Report Type: 
  Country: None (occurrence: None)
  Receive Date: 20090807
  Receipt Date: 20090727
  Transmission Date: 20100115
  Serious: Yes (Other)
  Sender: FDA-Public Use
  Company Number: PHHY2009AU24143

PATIENT
  Sex: Female

DRUGS (2)
  1. GENTEAL (NVO) [Suspect]
     Dosage: UNK
     Dates: start: 20090101
  2. REFRESH [Concomitant]

REACTIONS (8)
  - CONJUNCTIVITIS VIRAL [None]
  - CORNEAL EROSION [None]
  - DERMATITIS CONTACT [None]
  - EYE IRRITATION [None]
  - EYE PAIN [None]
  - EYE SWELLING [None]
  - EYELID OEDEMA [None]
  - LASER THERAPY [None]
